FAERS Safety Report 8567770-2 (Version None)
Quarter: 2012Q3

REPORT INFORMATION
  Report Type: 
  Country: None (occurrence: None)
  Receive Date: 20120803
  Receipt Date: 20120727
  Transmission Date: 20120928
  Serious: Yes (Disabling)
  Sender: FDA-Public Use
  Company Number: US-JNJFOC-20110203662

PATIENT
  Sex: Female
  Weight: 46.5 kg

DRUGS (22)
  1. ANTIBIOTICS [Concomitant]
     Indication: INFLAMMATORY BOWEL DISEASE
  2. BENADRYL [Concomitant]
     Route: 048
     Dates: start: 20100630
  3. REMICADE [Suspect]
     Route: 042
     Dates: start: 20100630
  4. TYLENOL (CAPLET) [Concomitant]
     Route: 048
     Dates: start: 20100308
  5. REMICADE [Suspect]
     Route: 042
     Dates: start: 20100809, end: 20100920
  6. BENADRYL [Concomitant]
     Route: 048
     Dates: start: 20100405
  7. BENADRYL [Concomitant]
     Route: 048
     Dates: start: 20100224
  8. TYLENOL (CAPLET) [Concomitant]
     Indication: PREMEDICATION
     Route: 048
     Dates: start: 20100630
  9. BENADRYL [Concomitant]
     Route: 048
     Dates: start: 20100308
  10. REMICADE [Suspect]
     Route: 042
     Dates: start: 20100224
  11. TYLENOL (CAPLET) [Concomitant]
     Route: 048
     Dates: start: 20100405
  12. MESALAMINE [Concomitant]
     Route: 048
  13. BENADRYL [Concomitant]
     Indication: PREMEDICATION
     Route: 048
     Dates: start: 20100809, end: 20100809
  14. REMICADE [Suspect]
     Route: 042
     Dates: start: 20100308
  15. BENADRYL [Concomitant]
     Route: 048
     Dates: start: 20100520
  16. REMICADE [Suspect]
     Indication: INFLAMMATORY BOWEL DISEASE
     Route: 042
     Dates: start: 20100520
  17. REMICADE [Suspect]
     Route: 042
     Dates: start: 20100405
  18. TYLENOL (CAPLET) [Concomitant]
     Route: 048
     Dates: start: 20100520
  19. TYLENOL (CAPLET) [Concomitant]
     Route: 048
     Dates: start: 20100224
  20. TYLENOL (CAPLET) [Concomitant]
     Route: 048
     Dates: start: 20100809, end: 20100809
  21. PREDNISONE [Concomitant]
  22. BUDESONIDE [Concomitant]

REACTIONS (1)
  - SYSTEMIC LUPUS ERYTHEMATOSUS [None]
